FAERS Safety Report 11984998 (Version 1)
Quarter: 2016Q1

REPORT INFORMATION
  Report Type: Report from Study
  Country: CA (occurrence: CA)
  Receive Date: 20160201
  Receipt Date: 20160201
  Transmission Date: 20160526
  Serious: Yes (Other)
  Sender: FDA-Public Use
  Company Number: CA-ABBVIE-15K-028-1488027-00

PATIENT
  Sex: Female
  Weight: 66.28 kg

DRUGS (1)
  1. HUMIRA [Suspect]
     Active Substance: ADALIMUMAB
     Indication: COLITIS ULCERATIVE
     Route: 058
     Dates: start: 20150212

REACTIONS (3)
  - Cytomegalovirus colitis [Recovering/Resolving]
  - Large intestinal ulcer [Unknown]
  - Colitis [Unknown]

NARRATIVE: CASE EVENT DATE: 2015
